FAERS Safety Report 19203959 (Version 3)
Quarter: 2021Q3

REPORT INFORMATION
  Report Type: Spontaneous
  Country: US (occurrence: US)
  Receive Date: 20210503
  Receipt Date: 20210810
  Transmission Date: 20211014
  Serious: Yes (Death, Other)
  Sender: FDA-Public Use
  Company Number: US-B.I. PHARMACEUTICALS,INC./RIDGEFIELD-2021-BI-101053

PATIENT
  Sex: Male

DRUGS (1)
  1. PRADAXA [Suspect]
     Active Substance: DABIGATRAN ETEXILATE MESYLATE
     Indication: PRODUCT USED FOR UNKNOWN INDICATION
     Dosage: 150 MG PO BID
     Route: 048
     Dates: start: 202012, end: 202104

REACTIONS (5)
  - Seizure [Fatal]
  - Depressed level of consciousness [Fatal]
  - Cardiac dysfunction [Fatal]
  - Subdural haematoma [Fatal]
  - Brain injury [Fatal]
